FAERS Safety Report 7928219-3 (Version None)
Quarter: 2011Q4

REPORT INFORMATION
  Report Type: 
  Country: None (occurrence: None)
  Receive Date: 20111118
  Receipt Date: 20111024
  Transmission Date: 20120403
  Serious: Yes (Hospitalization)
  Sender: FDA-Public Use
  Company Number: IN-SANOFI-AVENTIS-2011SA069922

PATIENT
  Age: 51 Year
  Sex: Male
  Weight: 54 kg

DRUGS (6)
  1. CISPLATIN [Suspect]
     Dosage: 25% REDUCED DOSE
     Route: 042
  2. DOCETAXEL [Suspect]
     Route: 042
     Dates: start: 20111014
  3. CISPLATIN [Suspect]
     Route: 042
     Dates: start: 20111014
  4. DOCETAXEL [Suspect]
     Indication: SQUAMOUS CELL CARCINOMA
     Route: 042
     Dates: start: 20110924
  5. DOCETAXEL [Suspect]
     Route: 042
  6. CISPLATIN [Suspect]
     Indication: SQUAMOUS CELL CARCINOMA
     Route: 042
     Dates: start: 20110924

REACTIONS (7)
  - PYREXIA [None]
  - DECREASED APPETITE [None]
  - FEBRILE NEUTROPENIA [None]
  - ABDOMINAL PAIN [None]
  - CREPITATIONS [None]
  - BLOOD PRESSURE DECREASED [None]
  - DIARRHOEA [None]
